FAERS Safety Report 9500420 (Version 1)
Quarter: 2013Q3

REPORT INFORMATION
  Report Type: Spontaneous
  Country: US (occurrence: US)
  Receive Date: 20130905
  Receipt Date: 20130905
  Transmission Date: 20140515
  Serious: Yes (Other)
  Sender: FDA-Public Use
  Company Number: US-ROXANE LABORATORIES, INC.-2013-RO-01478RO

PATIENT
  Age: 27 Year
  Sex: Female

DRUGS (11)
  1. DIGOXIN [Suspect]
     Dosage: 250 MCG
  2. CIPROFLOXACIN [Suspect]
     Indication: ANTIBIOTIC PROPHYLAXIS
     Dosage: 500 MG
  3. ASPIRIN [Concomitant]
     Dosage: 81 MG
  4. LOSARTAN [Concomitant]
     Dosage: 25 MG
  5. NAPROXEN [Concomitant]
     Dosage: 1000 MG
  6. TOPIRAMATE [Concomitant]
     Dosage: 50 MG
  7. LORATADINE [Concomitant]
     Dosage: 10 MG
  8. METOPROLOL [Concomitant]
     Dosage: 37.5 MG
  9. TRAZODONE [Concomitant]
     Dosage: 50 MG
  10. LANSOPRAZOLE [Concomitant]
     Dosage: 30 MG
  11. ORTHO TRI-CYCLEN [Concomitant]
     Route: 048

REACTIONS (2)
  - Toxicity to various agents [Recovered/Resolved]
  - Drug interaction [Recovered/Resolved]
